FAERS Safety Report 6533734-3 (Version None)
Quarter: 2010Q1

REPORT INFORMATION
  Report Type: 
  Country: None (occurrence: None)
  Receive Date: 20100111
  Receipt Date: 20090603
  Transmission Date: 20100710
  Serious: No
  Sender: FDA-Public Use
  Company Number: US-ABBOTT-09P-163-0578329-00

PATIENT
  Age: 39 Year
  Sex: Female

DRUGS (2)
  1. VICODIN [Suspect]
     Indication: PROCEDURAL PAIN
     Dates: start: 20050101, end: 20050101
  2. VICODIN [Suspect]
     Indication: BACK PAIN
     Dosage: AS NEEDED FOR BACK PAIN
     Dates: start: 20070101

REACTIONS (3)
  - DYSURIA [None]
  - KIDNEY INFECTION [None]
  - SOMNOLENCE [None]
